FAERS Safety Report 9298740 (Version 9)
Quarter: 2015Q1

REPORT INFORMATION
  Report Type: Spontaneous
  Country: CA (occurrence: CA)
  Receive Date: 20130520
  Receipt Date: 20150129
  Transmission Date: 20150721
  Serious: Yes (Hospitalization, Other)
  Sender: FDA-Public Use
  Company Number: CA-GLAXOSMITHKLINE-A1022975A

PATIENT
  Age: 64 Year
  Sex: Female

DRUGS (9)
  1. SIMVASTATIN. [Concomitant]
     Active Substance: SIMVASTATIN
     Indication: PRODUCT USED FOR UNKNOWN INDICATION
  2. PREMARIN [Concomitant]
     Active Substance: ESTROGENS, CONJUGATED
     Indication: PRODUCT USED FOR UNKNOWN INDICATION
  3. MAGNESIUM SUPPLEMENT [Concomitant]
     Indication: PRODUCT USED FOR UNKNOWN INDICATION
  4. VENTOLIN [Concomitant]
     Active Substance: ALBUTEROL SULFATE
     Indication: PRODUCT USED FOR UNKNOWN INDICATION
  5. ENALAPRIL [Concomitant]
     Active Substance: ENALAPRIL
     Indication: PRODUCT USED FOR UNKNOWN INDICATION
  6. CALCIUM SUPPLEMENT [Concomitant]
     Active Substance: CALCIUM
     Indication: PRODUCT USED FOR UNKNOWN INDICATION
  7. ADVAIR HFA [Suspect]
     Active Substance: FLUTICASONE PROPIONATE\SALMETEROL XINAFOATE
     Indication: CHRONIC OBSTRUCTIVE PULMONARY DISEASE
     Dosage: 25 MCG SALMETEROL 125 MCG FLUTICASONE;ADVAIR MDI 250MCG STARTED IN MAY 2013
     Route: 055
     Dates: start: 2012
  8. ADVAIR DISKUS [Suspect]
     Active Substance: FLUTICASONE PROPIONATE\SALMETEROL XINAFOATE
     Indication: CHRONIC OBSTRUCTIVE PULMONARY DISEASE
     Dosage: 50 MCG SALBUTAMOL 250 MCG FLUTICASONE
     Route: 055
     Dates: start: 20130417, end: 20130513
  9. POTASSIUM SUPPLEMENT [Concomitant]
     Indication: PRODUCT USED FOR UNKNOWN INDICATION

REACTIONS (18)
  - Drug ineffective [Not Recovered/Not Resolved]
  - Oropharyngeal discomfort [Unknown]
  - Dysphonia [Not Recovered/Not Resolved]
  - Metastases to bone [Not Recovered/Not Resolved]
  - Burning sensation [Unknown]
  - Metastases to liver [Not Recovered/Not Resolved]
  - Inhalation therapy [Unknown]
  - Dyspnoea [Recovered/Resolved]
  - Dry throat [Recovered/Resolved]
  - Pneumonia [Recovered/Resolved]
  - Cartilage injury [Unknown]
  - Productive cough [Recovered/Resolved]
  - Muscle spasms [Recovered/Resolved]
  - Cough [Not Recovered/Not Resolved]
  - Product quality issue [Unknown]
  - Rib fracture [Unknown]
  - Breast cancer [Not Recovered/Not Resolved]
  - Respiratory tract congestion [Recovered/Resolved]

NARRATIVE: CASE EVENT DATE: 20121215
